FAERS Safety Report 9255285 (Version 2)
Quarter: 2013Q2

REPORT INFORMATION
  Report Type: Spontaneous
  Country: US (occurrence: None)
  Receive Date: 20130419
  Receipt Date: 20130515
  Transmission Date: 20140414
  Serious: Yes (Death, Hospitalization)
  Sender: FDA-Public Use
  Company Number: AMAG201300066

PATIENT
  Age: 67 Year
  Sex: Female
  Weight: 39 kg

DRUGS (1)
  1. FERAHEME (FERUMOXYTOL) [Suspect]
     Route: 042
     Dates: start: 20130405, end: 20130405

REACTIONS (2)
  - Anaphylactic reaction [None]
  - Respiratory arrest [None]
